FAERS Safety Report 19760709 (Version 1)
Quarter: 2021Q3

REPORT INFORMATION
  Report Type: Spontaneous
  Country: JP (occurrence: JP)
  Receive Date: 20210830
  Receipt Date: 20210830
  Transmission Date: 20211014
  Serious: Yes (Other)
  Sender: FDA-Public Use
  Company Number: JP-GLAXOSMITHKLINE-JP2021180084

PATIENT
  Sex: Male

DRUGS (4)
  1. RELVAR ELLIPTA [Concomitant]
     Active Substance: FLUTICASONE FUROATE\VILANTEROL TRIFENATATE
  2. BISOLVON [Concomitant]
     Active Substance: BROMHEXINE HYDROCHLORIDE
  3. SODIUM CHLORIDE. [Concomitant]
     Active Substance: SODIUM CHLORIDE
  4. VENTOLINE [Suspect]
     Active Substance: ALBUTEROL
     Dosage: UNK, 6D

REACTIONS (4)
  - Cough [Unknown]
  - Pneumonia [Unknown]
  - Pulmonary necrosis [Unknown]
  - Therapeutic product effect decreased [Unknown]
